FAERS Safety Report 8261162-1 (Version None)
Quarter: 2012Q2

REPORT INFORMATION
  Report Type: 
  Country: None (occurrence: None)
  Receive Date: 20120405
  Receipt Date: 20120404
  Transmission Date: 20120825
  Serious: Yes (Death, Hospitalization)
  Sender: FDA-Public Use
  Company Number: PHHY2012PH028634

PATIENT
  Sex: Female

DRUGS (1)
  1. GLEEVEC [Suspect]
     Indication: CHRONIC MYELOID LEUKAEMIA
     Dosage: 400 MG, DAILY
     Route: 048
     Dates: start: 20070607

REACTIONS (4)
  - SEPSIS [None]
  - PNEUMONIA [None]
  - NEOPLASM MALIGNANT [None]
  - CHRONIC MYELOID LEUKAEMIA [None]
